FAERS Safety Report 4519188-7 (Version None)
Quarter: 2004Q4

REPORT INFORMATION
  Report Type: 
  Country: None (occurrence: None)
  Receive Date: 20041201
  Receipt Date: 20041115
  Transmission Date: 20050328
  Serious: Yes (Hospitalization)
  Sender: FDA-Public Use
  Company Number: S04-FRA-07681-01

PATIENT
  Age: 73 Year
  Sex: Male
  Weight: 70 kg

DRUGS (5)
  1. SEROPRAM (CITALOPRAM) [Suspect]
     Dosage: 20 MG QD PO
     Route: 048
     Dates: start: 20031201, end: 20040925
  2. EQUANIL [Suspect]
     Dosage: 400 MG QD PO
     Route: 048
     Dates: start: 20030201, end: 20040924
  3. PLAVIX [Suspect]
     Dosage: 75 MG QD PO
     Route: 048
     Dates: start: 20031201, end: 20040926
  4. ATHYMIL (MIANSERIN HYDROCHLORIDE) [Suspect]
     Dosage: 30 MG QD PO
     Route: 048
     Dates: start: 20040201, end: 20040924
  5. TRANXENE [Suspect]
     Dosage: 10 MG QD PO
     Route: 048
     Dates: start: 20040201, end: 20040924

REACTIONS (4)
  - FALL [None]
  - HAEMORRHAGE INTRACRANIAL [None]
  - HEAD INJURY [None]
  - MALAISE [None]
